FAERS Safety Report 16270781 (Version 1)
Quarter: 2019Q2

REPORT INFORMATION
  Report Type: Spontaneous
  Country: US (occurrence: US)
  Receive Date: 20190505
  Receipt Date: 20190505
  Transmission Date: 20190711
  Serious: No
  Sender: FDA-Public Use
  Company Number: US-JNJFOC-20190418133

PATIENT
  Age: 58 Year
  Sex: Female

DRUGS (1)
  1. TYLENOL EXTRA STRENGTH [Suspect]
     Active Substance: ACETAMINOPHEN
     Indication: PAIN
     Dosage: 2 CAPLETS 8:30AM AND 1:17PM
     Route: 048
     Dates: start: 20190410

REACTIONS (1)
  - Inappropriate schedule of product administration [Unknown]

NARRATIVE: CASE EVENT DATE: 20190410
